FAERS Safety Report 4285181-5 (Version None)
Quarter: 2004Q1

REPORT INFORMATION
  Report Type: 
  Country: None (occurrence: None)
  Receive Date: 20040203
  Receipt Date: 20040203
  Transmission Date: 20041129
  Serious: Yes (Life-Threatening, Hospitalization)
  Sender: FDA-Public Use
  Company Number: None

PATIENT
  Age: 21 Year

DRUGS (3)
  1. PAROXETINE HCL [Suspect]
     Indication: SUICIDE ATTEMPT
     Dosage: 1200 MG PO OTO
     Route: 048
     Dates: start: 20030827
  2. ZANAFLEX [Suspect]
  3. RUM [Suspect]

REACTIONS (3)
  - ALCOHOL USE [None]
  - INTENTIONAL OVERDOSE [None]
  - SUICIDE ATTEMPT [None]
